FAERS Safety Report 8997146 (Version 1)
Quarter: 2013Q1

REPORT INFORMATION
  Report Type: Spontaneous
  Country: GB (occurrence: GB)
  Receive Date: 20130104
  Receipt Date: 20130104
  Transmission Date: 20140127
  Serious: Yes (Hospitalization)
  Sender: FDA-Public Use
  Company Number: GB-TEVA-378258ISR

PATIENT
  Age: 79 Year
  Sex: 0

DRUGS (5)
  1. METRONIDAZOLE [Suspect]
     Dosage: NOT KNOWN
     Route: 048
     Dates: start: 20100406
  2. AMOXICILLIN\CLAVULANATE POTASSIUM [Suspect]
     Indication: OTITIS EXTERNA
     Route: 048
     Dates: start: 20110204, end: 20110211
  3. PHENOXYMETHYLPENICILLIN [Suspect]
     Route: 048
     Dates: start: 20100917
  4. FLUCLOXACILLIN [Suspect]
     Route: 048
     Dates: start: 20100917, end: 20100923
  5. PIPERACILLIN AND TAZOBACTAM [Suspect]
     Route: 041
     Dates: start: 20110421, end: 20110427

REACTIONS (2)
  - Clostridium difficile infection [Recovered/Resolved]
  - Diarrhoea [Unknown]
